FAERS Safety Report 6634086-0 (Version None)
Quarter: 2010Q1

REPORT INFORMATION
  Report Type: 
  Country: None (occurrence: None)
  Receive Date: 20100315
  Receipt Date: 20100304
  Transmission Date: 20100710
  Serious: Yes (Other)
  Sender: FDA-Public Use
  Company Number: ES-NAPPMUNDI-DEU-2009-0005757

PATIENT
  Sex: Female

DRUGS (7)
  1. OXYCODONE HCL/NALOXONE HCL CR TAB 10/5MG [Suspect]
     Indication: ARTHRALGIA
     Dosage: 20 MG, DAILY
     Route: 048
     Dates: start: 20091130, end: 20091204
  2. OXYCODONE HCL [Suspect]
     Dosage: 20 MG, DAILY
     Route: 048
     Dates: start: 20091111, end: 20091130
  3. OLMESARTAN [Concomitant]
  4. HIDROCLOROTIAZIDA [Concomitant]
  5. BISOPROLOL FUMARATE [Concomitant]
  6. DOXAZOSIN [Concomitant]
  7. AMLODIPINE [Concomitant]

REACTIONS (2)
  - DRUG WITHDRAWAL SYNDROME [None]
  - HYPERTENSIVE CRISIS [None]
